FAERS Safety Report 18902256 (Version 1)
Quarter: 2021Q1

REPORT INFORMATION
  Report Type: Spontaneous
  Country: LB (occurrence: LB)
  Receive Date: 20210216
  Receipt Date: 20210216
  Transmission Date: 20210420
  Serious: Yes (Death, Other)
  Sender: FDA-Public Use
  Company Number: LB-GILEAD-2021-0517423

PATIENT
  Sex: Male

DRUGS (1)
  1. VEKLURY [Suspect]
     Active Substance: REMDESIVIR
     Indication: COVID-19
     Dosage: ONE DAY ON? ONE DAY OFF
     Route: 065

REACTIONS (2)
  - Death [Fatal]
  - Off label use [Recovered/Resolved]
